FAERS Safety Report 6385635-1 (Version None)
Quarter: 2009Q4

REPORT INFORMATION
  Report Type: 
  Country: None (occurrence: None)
  Receive Date: 20091002
  Receipt Date: 20081010
  Transmission Date: 20100525
  Serious: No
  Sender: FDA-Public Use
  Company Number: US-ASTRAZENECA-2008UW22357

PATIENT
  Age: 62 Year
  Sex: Female

DRUGS (4)
  1. ARIMIDEX [Suspect]
     Route: 048
  2. SIMVASTATIN [Concomitant]
  3. LISINOPRIL [Concomitant]
  4. IBUPROFEN [Concomitant]
     Dosage: PRN

REACTIONS (1)
  - FIBROMYALGIA [None]
